FAERS Safety Report 9792500 (Version 1)
Quarter: 2014Q1

REPORT INFORMATION
  Report Type: Spontaneous
  Country: RS (occurrence: RS)
  Receive Date: 20140102
  Receipt Date: 20140102
  Transmission Date: 20141002
  Serious: Yes (Life-Threatening)
  Sender: FDA-Public Use
  Company Number: RS-TEVA-453169ISR

PATIENT
  Age: 34 Year
  Sex: Female
  Weight: 91 kg

DRUGS (6)
  1. PACLITAXEL [Suspect]
     Indication: CHEMOTHERAPY
     Route: 042
     Dates: start: 20131114, end: 20131114
  2. PACLITAXEL [Suspect]
     Indication: NEOPLASM
  3. RANITIDINE HYDROCHLORIDE [Concomitant]
     Indication: PREMEDICATION
     Dosage: 50 MG.
     Route: 040
     Dates: start: 20131114
  4. DEXAMETHASONE [Concomitant]
     Indication: PREMEDICATION
     Dosage: 4 MG.
     Route: 040
     Dates: start: 20131114
  5. CHLOROPYRAMINE [Concomitant]
     Indication: PREMEDICATION
     Dosage: 10 MG.
     Route: 040
     Dates: start: 20131114
  6. GRANISETRON [Concomitant]
     Indication: PREMEDICATION
     Dosage: 1 MG.
     Dates: start: 20131114

REACTIONS (3)
  - Dyspnoea [Recovered/Resolved]
  - Loss of consciousness [Recovered/Resolved]
  - Anaphylactic reaction [Recovered/Resolved]
